FAERS Safety Report 4934846-8 (Version None)
Quarter: 2006Q1

REPORT INFORMATION
  Report Type: 
  Country: None (occurrence: None)
  Receive Date: 20060302
  Receipt Date: 20060223
  Transmission Date: 20060701
  Serious: Yes (Life-Threatening, Hospitalization)
  Sender: FDA-Public Use
  Company Number: GXKR2006CA01143

PATIENT
  Age: 53 Year
  Sex: Male

DRUGS (2)
  1. METFORMIN (NGX) (METFORMIN) [Suspect]
     Indication: DIABETES MELLITUS
     Dosage: 50000 MG, OVERDOSE
  2. METOPROLOOL (NGX) (METOPROLOL) [Suspect]
     Dosage: OVERDOSE

REACTIONS (11)
  - ABDOMINAL PAIN [None]
  - ASTHENIA [None]
  - BRADYCARDIA [None]
  - CARDIAC ARREST [None]
  - HAEMODIALYSIS [None]
  - HYPOGLYCAEMIA [None]
  - HYPOTENSION [None]
  - INTENTIONAL OVERDOSE [None]
  - LACTIC ACIDOSIS [None]
  - RENAL FAILURE ACUTE [None]
  - RESPIRATORY FAILURE [None]
